FAERS Safety Report 13097186 (Version 1)
Quarter: 2017Q1

REPORT INFORMATION
  Report Type: Spontaneous
  Country: US (occurrence: US)
  Receive Date: 20170107
  Receipt Date: 20170107
  Transmission Date: 20170428
  Serious: Yes (Life-Threatening, Hospitalization)
  Sender: FDA-Public Use
  Company Number: None

PATIENT
  Sex: Female

DRUGS (1)
  1. CYMBALTA [Suspect]
     Active Substance: DULOXETINE HYDROCHLORIDE
     Indication: DEPRESSION
     Dosage: ?          QUANTITY:1 CAPSULE(S);?
     Route: 048
     Dates: start: 20160104, end: 20160405

REACTIONS (18)
  - Diarrhoea [None]
  - Nightmare [None]
  - Memory impairment [None]
  - Withdrawal syndrome [None]
  - Paraesthesia [None]
  - Suicidal ideation [None]
  - Discomfort [None]
  - Hyperhidrosis [None]
  - Nausea [None]
  - Constipation [None]
  - Pain [None]
  - Pruritus [None]
  - Depression [None]
  - Headache [None]
  - Dizziness [None]
  - Tinnitus [None]
  - Abdominal pain upper [None]
  - Disturbance in attention [None]

NARRATIVE: CASE EVENT DATE: 20160504
